FAERS Safety Report 6932879-3 (Version None)
Quarter: 2010Q3

REPORT INFORMATION
  Report Type: 
  Country: None (occurrence: None)
  Receive Date: 20100819
  Receipt Date: 20100708
  Transmission Date: 20110219
  Serious: Yes (Other)
  Sender: FDA-Public Use
  Company Number: US-BAXTER-2009BH018730

PATIENT
  Age: 49 Year
  Sex: Female

DRUGS (7)
  1. HEPARIN SODIUM INJECTION [Suspect]
     Indication: CATHETERISATION VENOUS
     Route: 042
     Dates: start: 20080215
  2. HEPARIN SODIUM 1,000 UNITS AND SODIUM CHLORIDE 0.9% [Suspect]
     Indication: PRODUCT USED FOR UNKNOWN INDICATION
     Route: 042
     Dates: start: 20080215, end: 20080215
  3. TOPAMAX [Concomitant]
     Indication: PRODUCT USED FOR UNKNOWN INDICATION
     Route: 065
  4. TEGRETOL [Concomitant]
     Indication: PRODUCT USED FOR UNKNOWN INDICATION
     Route: 065
  5. FEMARA [Concomitant]
     Indication: PRODUCT USED FOR UNKNOWN INDICATION
     Route: 065
  6. ACETAMINOPHEN [Concomitant]
     Indication: PRODUCT USED FOR UNKNOWN INDICATION
     Route: 048
  7. NORMAL SALINE [Concomitant]
     Indication: PRODUCT USED FOR UNKNOWN INDICATION
     Route: 042

REACTIONS (12)
  - ABDOMINAL PAIN [None]
  - ANAEMIA [None]
  - ATELECTASIS [None]
  - BURNING SENSATION [None]
  - DIARRHOEA [None]
  - HAEMORRHAGE [None]
  - HAEMORRHAGIC DISORDER [None]
  - HYPERHIDROSIS [None]
  - LYMPHOEDEMA [None]
  - MENTAL STATUS CHANGES [None]
  - PHARYNGEAL OEDEMA [None]
  - THROAT TIGHTNESS [None]
